FAERS Safety Report 13038797 (Version 1)
Quarter: 2016Q4

REPORT INFORMATION
  Report Type: Spontaneous
  Country: GB (occurrence: GB)
  Receive Date: 20161219
  Receipt Date: 20161219
  Transmission Date: 20170207
  Serious: Yes (Disabling, Other)
  Sender: FDA-Public Use
  Company Number: GB-ACCORD-046516

PATIENT
  Age: 85 Year
  Sex: Male
  Weight: 78 kg

DRUGS (10)
  1. ACTAVIS UK SALBUTAMOL [Concomitant]
  2. DOXYCYCLINE. [Concomitant]
     Active Substance: DOXYCYCLINE
  3. ACTAVIS UK PREDNISOLONE [Concomitant]
     Active Substance: PREDNISOLONE
  4. SERETIDE [Concomitant]
     Active Substance: FLUTICASONE PROPIONATE\SALMETEROL XINAFOATE
  5. CODEINE PHOSPHATE/PARACETAMOL [Concomitant]
  6. AMLODIPINE [Suspect]
     Active Substance: AMLODIPINE BESYLATE
     Indication: ESSENTIAL HYPERTENSION
     Route: 048
     Dates: start: 20161107, end: 20161110
  7. ACTAVIS UK LEVOTHYROXINE [Concomitant]
     Active Substance: LEVOTHYROXINE
  8. ALENDRONATE SODIUM/ALENDRONIC ACID [Concomitant]
  9. RAMIPRIL. [Concomitant]
     Active Substance: RAMIPRIL
  10. TIOTROPIUM/TIOTROPIUM BROMIDE [Concomitant]

REACTIONS (8)
  - Cough [Recovered/Resolved]
  - Palpitations [Recovered/Resolved]
  - Dyspnoea [Recovered/Resolved]
  - Tachycardia [Recovered/Resolved]
  - Tachypnoea [Recovered/Resolved]
  - Chills [Recovered/Resolved]
  - Malaise [Recovered/Resolved]
  - Oxygen saturation decreased [Unknown]

NARRATIVE: CASE EVENT DATE: 20161107
